FAERS Safety Report 4773248-4 (Version None)
Quarter: 2005Q3

REPORT INFORMATION
  Report Type: 
  Country: None (occurrence: None)
  Receive Date: 20050916
  Receipt Date: 20050830
  Transmission Date: 20060218
  Serious: No
  Sender: FDA-Public Use
  Company Number: USA0507104032

PATIENT
  Sex: Male

DRUGS (1)
  1. HUMALOG MIX 75/25 [Suspect]
     Indication: DIABETES MELLITUS
     Dosage: FEW WEEKS

REACTIONS (4)
  - INJECTION SITE PAIN [None]
  - INJECTION SITE REACTION [None]
  - PHARMACEUTICAL PRODUCT COMPLAINT [None]
  - WRONG TECHNIQUE IN DRUG USAGE PROCESS [None]
